FAERS Safety Report 11829690 (Version 1)
Quarter: 2015Q4

REPORT INFORMATION
  Report Type: Spontaneous
  Country: US (occurrence: US)
  Receive Date: 20151212
  Receipt Date: 20151212
  Transmission Date: 20160305
  Serious: Yes (Death)
  Sender: FDA-Public Use
  Company Number: US-ASTRAZENECA-2015SF21292

PATIENT

DRUGS (5)
  1. TRADJENTA [Suspect]
     Active Substance: LINAGLIPTIN
     Route: 065
     Dates: start: 2007, end: 2009
  2. BYETTA [Suspect]
     Active Substance: EXENATIDE
     Route: 065
     Dates: start: 2007, end: 2009
  3. JANUVIA [Suspect]
     Active Substance: SITAGLIPTIN PHOSPHATE
     Route: 065
     Dates: start: 2007, end: 2009
  4. VICTOZA [Suspect]
     Active Substance: LIRAGLUTIDE
     Route: 065
     Dates: start: 2007, end: 2009
  5. JANUMET [Suspect]
     Active Substance: METFORMIN HYDROCHLORIDE\SITAGLIPTIN PHOSPHATE
     Route: 065
     Dates: start: 2007, end: 2009

REACTIONS (1)
  - Pancreatic carcinoma [Fatal]

NARRATIVE: CASE EVENT DATE: 20090312
